FAERS Safety Report 5054974-9 (Version None)
Quarter: 2006Q3

REPORT INFORMATION
  Report Type: 
  Country: None (occurrence: None)
  Receive Date: 20060719
  Receipt Date: 20060713
  Transmission Date: 20061208
  Serious: Yes (Life-Threatening, Hospitalization, Disabling, Other)
  Sender: FDA-Public Use
  Company Number: HN-GLAXOSMITHKLINE-A0612553A

PATIENT
  Age: 49 Year
  Sex: Female
  Weight: 70 kg

DRUGS (5)
  1. PAROXETINE HCL [Suspect]
  2. ZIPRASIDONE HCL [Suspect]
  3. CLONAZEPAM [Suspect]
  4. ALPRAZOLAM [Suspect]
  5. AMITRIPTYLINE HCL [Suspect]

REACTIONS (3)
  - COMA [None]
  - INTENTIONAL OVERDOSE [None]
  - LETHARGY [None]
